FAERS Safety Report 17246893 (Version 1)
Quarter: 2020Q1

REPORT INFORMATION
  Report Type: Spontaneous
  Country: US (occurrence: US)
  Receive Date: 20200108
  Receipt Date: 20200108
  Transmission Date: 20200409
  Serious: No
  Sender: FDA-Public Use
  Company Number: US-PFIZER INC-2020005635

PATIENT
  Age: 10 Year
  Sex: Female

DRUGS (1)
  1. SIROLIMUS. [Suspect]
     Active Substance: SIROLIMUS
     Dosage: UNK

REACTIONS (2)
  - Hyperlipidaemia [Unknown]
  - Weight increased [Unknown]
